FAERS Safety Report 8578899-7 (Version None)
Quarter: 2012Q3

REPORT INFORMATION
  Report Type: 
  Country: None (occurrence: None)
  Receive Date: 20120808
  Receipt Date: 20120731
  Transmission Date: 20120928
  Serious: Yes (Hospitalization, Other)
  Sender: FDA-Public Use
  Company Number: CA-EISAI INC-E7389-02582-CLI-CA

PATIENT
  Sex: Female
  Weight: 93 kg

DRUGS (6)
  1. COLCHICINE [Suspect]
     Indication: GOUT
     Dosage: UNKNOWN
     Dates: start: 20120518
  2. EZETIMIBE [Concomitant]
  3. VENLAFAXINE [Concomitant]
     Indication: DEPRESSION
  4. EPIRUBICIN HYDROCHLORIDE [Suspect]
     Dosage: UNKNOWN
     Route: 041
     Dates: start: 20120530
  5. AMLODIPINE [Concomitant]
     Indication: HYPERTENSION
  6. HYDROXYCHLOROQUINE SULFATE [Concomitant]
     Indication: RHEUMATOID ARTHRITIS

REACTIONS (5)
  - DYSPNOEA [None]
  - NEUTROPENIA [None]
  - LEFT VENTRICULAR DYSFUNCTION [None]
  - PNEUMONIA [None]
  - ANAEMIA [None]
